FAERS Safety Report 5691586-8 (Version None)
Quarter: 2008Q2

REPORT INFORMATION
  Report Type: 
  Country: None (occurrence: None)
  Receive Date: 20080402
  Receipt Date: 20080324
  Transmission Date: 20081010
  Serious: Yes (Hospitalization)
  Sender: FDA-Public Use
  Company Number: JP-JNJFOC-20080105938

PATIENT
  Sex: Female
  Weight: 50 kg

DRUGS (10)
  1. REMICADE [Suspect]
     Route: 042
  2. REMICADE [Suspect]
     Route: 042
  3. REMICADE [Suspect]
     Indication: RHEUMATOID ARTHRITIS
     Route: 042
  4. METHOTREXATE [Suspect]
     Indication: RHEUMATOID ARTHRITIS
     Route: 048
  5. PREDNISOLONE [Suspect]
     Indication: DRUG USE FOR UNKNOWN INDICATION
     Route: 048
  6. ICROL [Concomitant]
     Dosage: NO INTERRUPTION AFTER AE ONSET
     Route: 048
  7. MUCOSTA [Concomitant]
     Dosage: NO INTERRUPTION AFTER AE ONSET
     Route: 048
  8. REMODELLIN [Concomitant]
     Dosage: ^1RG^ DAY, NO INTERRUPTION AFTER AE ONSET
     Route: 048
  9. FOLIAMIN [Concomitant]
     Dosage: NO INTERRUPTION AFTER AE ONSET
     Route: 048
  10. RISEDRONATE SODIUM [Concomitant]
     Dosage: NO INTERRUPTION AFTER AE ONSET
     Route: 048

REACTIONS (6)
  - ABDOMINAL PAIN [None]
  - DRUG ERUPTION [None]
  - HYPOGLYCAEMIA [None]
  - LIVER DISORDER [None]
  - PNEUMOCYSTIS JIROVECI PNEUMONIA [None]
  - RENAL DISORDER [None]
